FAERS Safety Report 10084999 (Version 2)
Quarter: 2014Q2

REPORT INFORMATION
  Report Type: Spontaneous
  Country: US (occurrence: US)
  Receive Date: 20140417
  Receipt Date: 20140417
  Transmission Date: 20141212
  Serious: No
  Sender: FDA-Public Use
  Company Number: US-GE HEALTHCARE MEDICAL DIAGNOSTICS-VISP-PR-1402S-0076

PATIENT
  Age: 58 Year
  Sex: Male
  Weight: 79.45 kg

DRUGS (2)
  1. VISIPAQUE [Suspect]
     Indication: TENDERNESS
     Route: 042
     Dates: start: 20140225, end: 20140225
  2. VISIPAQUE [Suspect]
     Indication: DIAGNOSTIC PROCEDURE

REACTIONS (2)
  - Dyspnoea [Recovered/Resolved]
  - Vomiting [Recovered/Resolved]
